FAERS Safety Report 12319172 (Version 1)
Quarter: 2016Q2

REPORT INFORMATION
  Report Type: Spontaneous
  Country: US (occurrence: US)
  Receive Date: 20160429
  Receipt Date: 20160429
  Transmission Date: 20160815
  Serious: No
  Sender: FDA-Public Use
  Company Number: US-ROCHE-1600884

PATIENT
  Age: 80 Year
  Sex: Male
  Weight: 80.36 kg

DRUGS (2)
  1. ESBRIET [Suspect]
     Active Substance: PIRFENIDONE
     Indication: IDIOPATHIC PULMONARY FIBROSIS
     Dosage: 2403 MG (3 CAPSULES OF 267 MG THRICE DAILY)
     Route: 048
     Dates: start: 20150515
  2. ESBRIET [Suspect]
     Active Substance: PIRFENIDONE
     Dosage: (3 CAPSULES THRICE DAILY)
     Route: 048
     Dates: start: 20150609

REACTIONS (8)
  - Malaise [Unknown]
  - Decreased appetite [Recovered/Resolved]
  - Hypogeusia [Unknown]
  - Asthenia [Recovered/Resolved]
  - Diarrhoea [Unknown]
  - Constipation [Unknown]
  - Headache [Unknown]
  - Chromaturia [Recovered/Resolved]

NARRATIVE: CASE EVENT DATE: 20150612
